FAERS Safety Report 7815711-5 (Version None)
Quarter: 2011Q4

REPORT INFORMATION
  Report Type: 
  Country: None (occurrence: None)
  Receive Date: 20111014
  Receipt Date: 20110929
  Transmission Date: 20120403
  Serious: Yes (Other)
  Sender: FDA-Public Use
  Company Number: US-BRISTOL-MYERS SQUIBB COMPANY-16162745

PATIENT
  Sex: Female

DRUGS (3)
  1. CALCIUM + VITAMIN D [Concomitant]
  2. ESTRACE [Suspect]
     Indication: HORMONE REPLACEMENT THERAPY
     Route: 048
  3. VITAMIN TAB [Concomitant]

REACTIONS (5)
  - PRURITUS [None]
  - PHOTOSENSITIVITY REACTION [None]
  - RASH ERYTHEMATOUS [None]
  - HYSTERECTOMY [None]
  - SWELLING FACE [None]
